FAERS Safety Report 24943032 (Version 1)
Quarter: 2025Q1

REPORT INFORMATION
  Report Type: Spontaneous
  Country: US (occurrence: US)
  Receive Date: 20250207
  Receipt Date: 20250207
  Transmission Date: 20250409
  Serious: No
  Sender: ITALFARMACO SPA
  Company Number: US-ITALFARMACO SPA-2170715

PATIENT
  Age: 11 Year
  Sex: Male
  Weight: 70 kg

DRUGS (1)
  1. DUVYZAT [Suspect]
     Active Substance: GIVINOSTAT
     Indication: Duchenne muscular dystrophy
     Dates: start: 20241129

REACTIONS (5)
  - Diarrhoea [Unknown]
  - Ventricular extrasystoles [Unknown]
  - Epistaxis [Recovered/Resolved]
  - Platelet count decreased [Unknown]
  - Faeces discoloured [Unknown]
